FAERS Safety Report 7606367-5 (Version None)
Quarter: 2011Q3

REPORT INFORMATION
  Report Type: 
  Country: None (occurrence: None)
  Receive Date: 20110705
  Receipt Date: 20110628
  Transmission Date: 20111222
  Serious: Yes (Hospitalization)
  Sender: FDA-Public Use
  Company Number: 2011SP030151

PATIENT
  Age: 47 Year
  Sex: Male

DRUGS (7)
  1. ALLOPURINOL [Concomitant]
  2. REMERON [Suspect]
     Indication: ANXIETY
     Dosage: 45 MG;QD;PO
     Route: 048
     Dates: start: 20110617
  3. REMERON [Suspect]
     Indication: MAJOR DEPRESSION
     Dosage: 45 MG;QD;PO
     Route: 048
     Dates: start: 20110617
  4. CYMBALTA [Suspect]
     Indication: PRODUCT USED FOR UNKNOWN INDICATION
  5. RAMIPRIL [Concomitant]
  6. ABILIFY [Suspect]
     Indication: PRODUCT USED FOR UNKNOWN INDICATION
  7. LEXAPRO [Suspect]
     Indication: PRODUCT USED FOR UNKNOWN INDICATION
     Dosage: 2.5 MG ; 5 MG

REACTIONS (4)
  - SOMNOLENCE [None]
  - PANIC ATTACK [None]
  - ANXIETY [None]
  - FEELING ABNORMAL [None]
